FAERS Safety Report 9909080 (Version 1)
Quarter: 2014Q1

REPORT INFORMATION
  Report Type: Spontaneous
  Country: US (occurrence: None)
  Receive Date: 20140212
  Receipt Date: 20140212
  Transmission Date: 20141002
  Serious: Yes (Other)
  Sender: FDA-Public Use
  Company Number: SYM-2014-17319

PATIENT
  Sex: 0

DRUGS (9)
  1. FLUOROURACIL (FLUOROURACIL) (SOLUTION FOR INFUSION) (FLUOROURACIL) [Suspect]
     Indication: ADENOCARCINOMA PANCREAS
     Route: 042
  2. IRINOTECAN (IRINOTECAN) (IRINOTECAN) [Suspect]
     Indication: ADENOCARCINOMA PANCREAS
     Route: 042
  3. OXALIPLATIN (OXALIPLATIN) (OXALIPLATIN) [Suspect]
     Indication: ADENOCARCINOMA PANCREAS
     Route: 042
  4. LEUCOVORIN (FOLINIC ACID) (FOLINIC ACID) [Suspect]
     Indication: ADENOCARCINOMA PANCREAS
     Route: 042
  5. SEROTONIN ANTAGONISTS (SEROTONIN ANTAGONISTS) [Concomitant]
  6. DEXAMETHASONE (DEXAMETHASONE) [Concomitant]
  7. DEXTROSE (GLUCOSE) (GLUCOSE) [Concomitant]
  8. NORMAL SALINE (SODIUM CHLORIDE) [Concomitant]
  9. PEGFILGRASTIM (PEGFILGRASTIM) [Concomitant]

REACTIONS (1)
  - Thrombocytopenia [None]
